FAERS Safety Report 9474723 (Version 1)
Quarter: 2013Q3

REPORT INFORMATION
  Report Type: Spontaneous
  Country: US (occurrence: US)
  Receive Date: 20130823
  Receipt Date: 20130823
  Transmission Date: 20140515
  Serious: Yes (Death, Hospitalization)
  Sender: FDA-Public Use
  Company Number: US-CELGENEUS-163-50794-13082683

PATIENT
  Age: 15 Year
  Sex: Male

DRUGS (5)
  1. VIDAZA [Suspect]
     Indication: ACUTE LEUKAEMIA
     Route: 065
  2. DOPAMINE [Concomitant]
     Indication: PNEUMONIA
     Dosage: 20 MILLIGRAM/MILLILITERS
     Route: 041
  3. DOPAMINE [Concomitant]
     Indication: RESPIRATORY FAILURE
  4. PIPERACILLIN/TAZOBACTAM [Concomitant]
     Indication: PRODUCT USED FOR UNKNOWN INDICATION
     Dosage: 12 GRAM
     Route: 041
  5. FLUCONAZOLE [Concomitant]
     Indication: PRODUCT USED FOR UNKNOWN INDICATION
     Dosage: 400 MILLIGRAM
     Route: 048

REACTIONS (1)
  - Sinusitis fungal [Fatal]
